FAERS Safety Report 10597050 (Version 1)
Quarter: 2014Q4

REPORT INFORMATION
  Report Type: Spontaneous
  Country: GB (occurrence: GB)
  Receive Date: 20141121
  Receipt Date: 20141121
  Transmission Date: 20150529
  Serious: Yes (Other)
  Sender: FDA-Public Use
  Company Number: GB-ACCORD-027108

PATIENT
  Sex: Male

DRUGS (2)
  1. NALTREXONE/NALTREXONE HYDROCHLORIDE [Suspect]
     Active Substance: NALTREXONE
     Indication: REHABILITATION THERAPY
  2. CARBAMAZEPINE. [Suspect]
     Active Substance: CARBAMAZEPINE
     Indication: ANXIETY
     Dosage: DOSE REDUCED TO 400 MCG/DAY A YEAR AGO AND 200 MCG/DAY A MONTH AGO.

REACTIONS (2)
  - Gamma-glutamyltransferase increased [Unknown]
  - Hyperhidrosis [None]
